FAERS Safety Report 21657158 (Version 1)
Quarter: 2022Q4

REPORT INFORMATION
  Report Type: Report from Study
  Country: KR (occurrence: KR)
  Receive Date: 20221129
  Receipt Date: 20221129
  Transmission Date: 20230113
  Serious: Yes (Death)
  Sender: FDA-Public Use
  Company Number: KR-MYLANLABS-2022M1133533

PATIENT
  Age: 68 Year
  Sex: Female

DRUGS (10)
  1. ETOPOSIDE [Suspect]
     Active Substance: ETOPOSIDE
     Indication: Haemophagocytic lymphohistiocytosis
     Dosage: UNK, FIVE DAYS AFTER TOCILIZUMAB, SHE RECEIVED RESCUE REGIMEN WITH HLH-2004 REGIMEN....
     Route: 065
  2. ETOPOSIDE [Suspect]
     Active Substance: ETOPOSIDE
     Indication: Immunosuppressant drug therapy
  3. TOCILIZUMAB [Suspect]
     Active Substance: TOCILIZUMAB
     Indication: Haemophagocytic lymphohistiocytosis
     Dosage: 8 MILLIGRAM/KILOGRAM, ONCE
     Route: 065
  4. DEXAMETHASONE [Suspect]
     Active Substance: DEXAMETHASONE
     Indication: Haemophagocytic lymphohistiocytosis
     Dosage: 20 MILLIGRAM, QD
     Route: 065
  5. DEXAMETHASONE [Suspect]
     Active Substance: DEXAMETHASONE
     Dosage: UNK FIVE DAYS AFTER TOCILIZUMAB, SHE RECEIVED RESCUE REGIMEN WITH HLH-2004 REGIMEN....
     Route: 065
  6. CYCLOSPORINE [Suspect]
     Active Substance: CYCLOSPORINE
     Indication: Haemophagocytic lymphohistiocytosis
     Dosage: UNK FIVE DAYS AFTER TOCILIZUMAB, SHE RECEIVED RESCUE REGIMEN WITH HLH-2004 REGIMEN....
     Route: 065
  7. METHOTREXATE [Suspect]
     Active Substance: METHOTREXATE
     Indication: Haemophagocytic lymphohistiocytosis
     Dosage: UNK ~FIVE DAYS AFTER TOCILIZUMAB, SHE RECEIVED RESCUE REGIMEN WITH HLH-2004 REGIMEN....
     Route: 065
  8. PREDNISOLONE [Suspect]
     Active Substance: PREDNISOLONE
     Indication: Haemophagocytic lymphohistiocytosis
     Dosage: UNK FIVE DAYS AFTER TOCILIZUMAB, SHE RECEIVED RESCUE REGIMEN WITH HLH-2004 REGIMEN....
     Route: 065
  9. SULFAMETHOXAZOLE\TRIMETHOPRIM [Suspect]
     Active Substance: SULFAMETHOXAZOLE\TRIMETHOPRIM
     Indication: Haemophagocytic lymphohistiocytosis
     Dosage: UNK FIVE DAYS AFTER TOCILIZUMAB, SHE RECEIVED RESCUE REGIMEN WITH HLH-2004 REGIMEN....
     Route: 065
  10. IMMUNE GLOBULIN NOS [Suspect]
     Active Substance: IMMUNE GLOBULIN NOS
     Indication: Haemophagocytic lymphohistiocytosis
     Dosage: UNK FIVE DAYS AFTER TOCILIZUMAB, SHE RECEIVED RESCUE REGIMEN WITH HLH-2004 REGIMEN....
     Route: 042

REACTIONS (2)
  - Drug ineffective [Fatal]
  - Septic shock [Fatal]
